FAERS Safety Report 19153351 (Version 3)
Quarter: 2021Q2

REPORT INFORMATION
  Report Type: Spontaneous
  Country: GB (occurrence: GB)
  Receive Date: 20210419
  Receipt Date: 20210423
  Transmission Date: 20210717
  Serious: Yes (Hospitalization, Other)
  Sender: FDA-Public Use
  Company Number: GB-PFIZER INC-2021423996

PATIENT
  Age: 31 Year
  Sex: Male

DRUGS (1)
  1. GABAPENTIN. [Suspect]
     Active Substance: GABAPENTIN
     Indication: BACK PAIN
     Dosage: 36 G, DAILY (10 TIMES THE RECOMMENDED MAXIMUM DAILY DOSE)

REACTIONS (8)
  - Drug withdrawal convulsions [Unknown]
  - Intentional overdose [Unknown]
  - Drug dependence [Recovered/Resolved]
  - Myalgia [Unknown]
  - Withdrawal syndrome [Unknown]
  - Pyrexia [Unknown]
  - Drug abuse [Unknown]
  - Asthenia [Unknown]
